FAERS Safety Report 4794951-6 (Version None)
Quarter: 2005Q4

REPORT INFORMATION
  Report Type: 
  Country: None (occurrence: None)
  Receive Date: 20051006
  Receipt Date: 20050923
  Transmission Date: 20060501
  Serious: Yes (Hospitalization)
  Sender: FDA-Public Use
  Company Number: 2005132638

PATIENT
  Sex: Male

DRUGS (2)
  1. XALATAN [Suspect]
     Indication: ILL-DEFINED DISORDER
     Dosage: OPHTHALMIC
     Route: 047
  2. BETA BLOCKING AGENTS (BETA BLOCKING AGENTS) [Suspect]
     Indication: ILL-DEFINED DISORDER

REACTIONS (1)
  - BRADYCARDIA [None]
